FAERS Safety Report 19968568 (Version 2)
Quarter: 2021Q4

REPORT INFORMATION
  Report Type: Spontaneous
  Country: US (occurrence: None)
  Receive Date: 20211019
  Receipt Date: 20211213
  Transmission Date: 20220304
  Serious: Yes (Other)
  Sender: FDA-Public Use
  Company Number: US-ROCHE-2932650

PATIENT
  Age: 74 Year
  Sex: Female

DRUGS (18)
  1. ACTEMRA [Suspect]
     Active Substance: TOCILIZUMAB
     Indication: Rheumatoid arthritis
     Route: 058
  2. ACTEMRA [Suspect]
     Active Substance: TOCILIZUMAB
  3. ACTEMRA [Suspect]
     Active Substance: TOCILIZUMAB
     Indication: Product used for unknown indication
     Route: 042
  4. PROPRANOLOL HYDROCHLORIDE [Concomitant]
     Active Substance: PROPRANOLOL HYDROCHLORIDE
     Route: 048
  5. NARATRIPTAN [Concomitant]
     Active Substance: NARATRIPTAN HYDROCHLORIDE
     Indication: Migraine
  6. FLOVENT [Concomitant]
     Active Substance: FLUTICASONE PROPIONATE
     Route: 055
  7. LORAZEPAM [Concomitant]
     Active Substance: LORAZEPAM
     Route: 048
  8. AMITRIPTYLINE [Concomitant]
     Active Substance: AMITRIPTYLINE
  9. OXYCODONE [Concomitant]
     Active Substance: OXYCODONE
  10. FLUDROCORTISONE [Concomitant]
     Active Substance: FLUDROCORTISONE
  11. METOCLOPRAMIDE [Concomitant]
     Active Substance: METOCLOPRAMIDE
  12. HYDROXYZINE [Concomitant]
     Active Substance: HYDROXYZINE HYDROCHLORIDE
  13. TRADJENTA [Concomitant]
     Active Substance: LINAGLIPTIN
  14. AZELASTINE [Concomitant]
     Active Substance: AZELASTINE
     Route: 031
  15. ETHACRYNIC ACID [Concomitant]
     Active Substance: ETHACRYNIC ACID
     Dates: start: 20210909
  16. POTASSIUM CHLORIDE [Concomitant]
     Active Substance: POTASSIUM CHLORIDE
  17. LIDOCAINE [Concomitant]
     Active Substance: LIDOCAINE
     Route: 061
  18. PREDNISONE [Concomitant]
     Active Substance: PREDNISONE

REACTIONS (13)
  - Pain [Not Recovered/Not Resolved]
  - Amnesia [Unknown]
  - Visual impairment [Unknown]
  - Muscle spasms [Not Recovered/Not Resolved]
  - Corneal scar [Not Recovered/Not Resolved]
  - Adrenal insufficiency [Not Recovered/Not Resolved]
  - Fungal infection [Unknown]
  - Underdose [Not Recovered/Not Resolved]
  - Device defective [Unknown]
  - Product dose omission issue [Unknown]
  - Syringe issue [Unknown]
  - Product quality issue [Unknown]
  - Device issue [Unknown]

NARRATIVE: CASE EVENT DATE: 20211007
